FAERS Safety Report 7222899-6 (Version None)
Quarter: 2011Q1

REPORT INFORMATION
  Report Type: 
  Country: None (occurrence: None)
  Receive Date: 20110106
  Receipt Date: 20110106
  Transmission Date: 20110831
  Serious: Yes (Hospitalization)
  Sender: FDA-Public Use
  Company Number: None

PATIENT
  Age: 48 Year
  Sex: Male
  Weight: 75 kg

DRUGS (6)
  1. RISPERDAL [Suspect]
     Indication: PARKINSON'S DISEASE
     Dosage: 2MG BID PO (RECENTLY)
     Route: 048
  2. METOPROLOL [Concomitant]
  3. AMILORIDE HYDROCHLORIDE [Concomitant]
  4. ASPIRIN [Concomitant]
  5. DONEPEZIL HCL [Concomitant]
  6. XANAX [Concomitant]

REACTIONS (12)
  - MUSCLE RIGIDITY [None]
  - DYSPHAGIA [None]
  - MENTAL STATUS CHANGES [None]
  - SPEECH DISORDER [None]
  - HYPERTENSION [None]
  - NEUROLEPTIC MALIGNANT SYNDROME [None]
  - TACHYCARDIA [None]
  - EXTRAPYRAMIDAL DISORDER [None]
  - COGNITIVE DISORDER [None]
  - CHOKING [None]
  - PYREXIA [None]
  - HYPERSENSITIVITY [None]
